FAERS Safety Report 4396643-4 (Version None)
Quarter: 2004Q3

REPORT INFORMATION
  Report Type: 
  Country: None (occurrence: None)
  Receive Date: 20040709
  Receipt Date: 20040705
  Transmission Date: 20050211
  Serious: Yes (Hospitalization)
  Sender: FDA-Public Use
  Company Number: 2004-07-0084

PATIENT
  Age: 41 Year
  Sex: Female

DRUGS (3)
  1. AERIUS (DESLORATADINE) TABLETS 'LIKE CLARINEX' [Suspect]
     Indication: SINUSITIS
     Dosage: 1 TABLET ORAL
     Route: 048
     Dates: start: 20040329, end: 20040427
  2. VENTOLIN [Concomitant]
  3. SALMETEROL XINAFOATE/FLUTICASONE PROPIONATE [Concomitant]

REACTIONS (4)
  - ABDOMINAL PAIN UPPER [None]
  - BACK PAIN [None]
  - HEPATOTOXICITY [None]
  - NAUSEA [None]
